FAERS Safety Report 8734698 (Version 2)
Quarter: 2012Q4

REPORT INFORMATION
  Report Type: 
  Country: JP (occurrence: JP)
  Receive Date: 20120821
  Receipt Date: 20121004
  Transmission Date: 20130627
  Serious: Yes (Other)
  Sender: FDA-Public Use
  Company Number: PHHY2012JP071441

PATIENT
  Age: 37 Year
  Sex: Female

DRUGS (2)
  1. DIOVAN [Suspect]
     Indication: HYPERTENSION
     Route: 048
     Dates: start: 20120802, end: 20120816
  2. TAKEPRON [Suspect]
     Route: 048
     Dates: start: 20120802, end: 20120816

REACTIONS (1)
  - Erythema multiforme [Recovered/Resolved]
